FAERS Safety Report 20023015 (Version 2)
Quarter: 2021Q4

REPORT INFORMATION
  Report Type: Report from Study
  Country: IE (occurrence: IE)
  Receive Date: 20211102
  Receipt Date: 20211106
  Transmission Date: 20220303
  Serious: No
  Sender: FDA-Public Use
  Company Number: IE-JNJFOC-20211018795

PATIENT
  Age: 29 Year
  Sex: Female

DRUGS (2)
  1. STELARA [Suspect]
     Active Substance: USTEKINUMAB
     Indication: Psoriasis
     Route: 058
     Dates: start: 20210910
  2. STELARA [Suspect]
     Active Substance: USTEKINUMAB

REACTIONS (3)
  - Device issue [Unknown]
  - Needle issue [Unknown]
  - Underdose [Unknown]
